FAERS Safety Report 14626046 (Version 1)
Quarter: 2018Q1

REPORT INFORMATION
  Report Type: Spontaneous
  Country: US (occurrence: US)
  Receive Date: 20180312
  Receipt Date: 20180312
  Transmission Date: 20180509
  Serious: Yes (Other)
  Sender: FDA-Public Use
  Company Number: US-PFIZER INC-2018100207

PATIENT
  Age: 47 Year
  Sex: Male
  Weight: 79.38 kg

DRUGS (2)
  1. BENEFIX [Suspect]
     Active Substance: COAGULATION FACTOR IX RECOMBINANT HUMAN\ISOPROPYL ALCOHOL
     Indication: FACTOR IX DEFICIENCY
     Dosage: ABOUT 3000 UNITS WHEN I NEED TO
  2. BENEFIX [Suspect]
     Active Substance: COAGULATION FACTOR IX RECOMBINANT HUMAN\ISOPROPYL ALCOHOL
     Indication: SUBDURAL HAEMORRHAGE

REACTIONS (6)
  - Mental impairment [Unknown]
  - Craniocerebral injury [Unknown]
  - Cerebral haemorrhage [Unknown]
  - Disease recurrence [Unknown]
  - Head injury [Unknown]
  - Memory impairment [Unknown]

NARRATIVE: CASE EVENT DATE: 20070415
